FAERS Safety Report 24899432 (Version 1)
Quarter: 2025Q1

REPORT INFORMATION
  Report Type: Other
  Country: US (occurrence: US)
  Receive Date: 20250129
  Receipt Date: 20250129
  Transmission Date: 20250408
  Serious: Yes (Other)
  Sender: AVONDALE PHARMACEUTICALS
  Company Number: US-Avondale Pharmaceuticals, LLC-2170024

PATIENT
  Age: 86 Year
  Sex: Male

DRUGS (6)
  1. NIACOR [Suspect]
     Active Substance: NIACIN
     Indication: Skin cancer
  2. WARFARIN SODIUM [Suspect]
     Active Substance: WARFARIN SODIUM
  3. MELATONIN [Concomitant]
     Active Substance: MELATONIN
  4. FINASTERIDE [Concomitant]
     Active Substance: FINASTERIDE
  5. ACETAMINOPHEN [Concomitant]
     Active Substance: ACETAMINOPHEN
  6. ALFUZOSIN [Concomitant]
     Active Substance: ALFUZOSIN

REACTIONS (4)
  - International normalised ratio increased [Recovered/Resolved]
  - Wrong product administered [Unknown]
  - Product selection error [Unknown]
  - Drug interaction [Unknown]
